FAERS Safety Report 4338328-6 (Version None)
Quarter: 2004Q2

REPORT INFORMATION
  Report Type: 
  Country: None (occurrence: None)
  Receive Date: 20040407
  Receipt Date: 20040402
  Transmission Date: 20050107
  Serious: Yes (Life-Threatening, Hospitalization)
  Sender: FDA-Public Use
  Company Number: FI-SHR-04-023431

PATIENT
  Age: 54 Year
  Sex: Female

DRUGS (3)
  1. CLIMARA [Suspect]
     Indication: ENDOMETRIAL HYPERPLASIA
     Dosage: 50 UG/DAY, CONT, TRANSDERMAL
     Route: 062
     Dates: start: 20010101, end: 20040329
  2. MLS-LNG-IUS(LEVONORGESTREL) IUS [Suspect]
     Indication: PROPHYLAXIS
     Dosage: 10 UG/DAY, CONT, INTRA-UTERINE
     Route: 015
     Dates: start: 20010101, end: 20040329
  3. TENOX (TEMAZEPAM) [Concomitant]

REACTIONS (4)
  - DEPRESSION [None]
  - DRUG TOXICITY [None]
  - INTENTIONAL OVERDOSE [None]
  - SUICIDE ATTEMPT [None]
